FAERS Safety Report 8195457-7 (Version None)
Quarter: 2012Q1

REPORT INFORMATION
  Report Type: 
  Country: None (occurrence: None)
  Receive Date: 20120308
  Receipt Date: 20120228
  Transmission Date: 20120608
  Serious: Yes (Other)
  Sender: FDA-Public Use
  Company Number: PHEH2009US04200

PATIENT
  Sex: Male

DRUGS (2)
  1. LYRICA [Suspect]
  2. EXJADE [Suspect]
     Indication: LYMPHOCYTIC LEUKAEMIA
     Dosage: 1500 MG, QD
     Route: 048
     Dates: start: 20090331, end: 20090630

REACTIONS (5)
  - BLOOD CREATININE INCREASED [None]
  - GENERALISED OEDEMA [None]
  - PROTEINURIA [None]
  - GRAFT VERSUS HOST DISEASE [None]
  - WEIGHT INCREASED [None]
